FAERS Safety Report 7542518-9 (Version None)
Quarter: 2011Q2

REPORT INFORMATION
  Report Type: 
  Country: None (occurrence: None)
  Receive Date: 20110613
  Receipt Date: 20110609
  Transmission Date: 20111010
  Serious: No
  Sender: FDA-Public Use
  Company Number: US-TEVA-285387USA

PATIENT
  Sex: Male
  Weight: 81.72 kg

DRUGS (3)
  1. ALPRAZOLAM [Concomitant]
  2. PROAIR HFA [Suspect]
     Indication: EMPHYSEMA
     Dosage: 540 MICROGRAM;
     Route: 055
     Dates: start: 20110608, end: 20110608
  3. ASPIRIN [Concomitant]

REACTIONS (9)
  - HEADACHE [None]
  - DISORIENTATION [None]
  - EYE PAIN [None]
  - COUGH [None]
  - PAIN IN EXTREMITY [None]
  - PAIN [None]
  - PSYCHOMOTOR HYPERACTIVITY [None]
  - DYSPNOEA [None]
  - VISUAL IMPAIRMENT [None]
